FAERS Safety Report 13398036 (Version 1)
Quarter: 2017Q2

REPORT INFORMATION
  Report Type: Spontaneous
  Country: TR (occurrence: TR)
  Receive Date: 20170403
  Receipt Date: 20170403
  Transmission Date: 20170830
  Serious: Yes (Death, Hospitalization)
  Sender: FDA-Public Use
  Company Number: TR-UNICHEM LABORATORIES LIMITED-UCM201703-000077

PATIENT
  Age: 18 Year
  Sex: Female
  Weight: 56 kg

DRUGS (1)
  1. AMLODIPINE [Suspect]
     Active Substance: AMLODIPINE BESYLATE
     Indication: SUICIDE ATTEMPT

REACTIONS (8)
  - Metabolic acidosis [Fatal]
  - Cardiac arrest [Unknown]
  - Sinus bradycardia [Unknown]
  - Pulmonary oedema [Fatal]
  - Myocardial depression [Unknown]
  - Hypoxia [Fatal]
  - Completed suicide [Fatal]
  - Intentional overdose [Fatal]
